FAERS Safety Report 5350886-1 (Version None)
Quarter: 2007Q2

REPORT INFORMATION
  Report Type: 
  Country: None (occurrence: None)
  Receive Date: 20070608
  Receipt Date: 20070601
  Transmission Date: 20071010
  Serious: Yes (Disabling, Other)
  Sender: FDA-Public Use
  Company Number: B0474269A

PATIENT
  Age: 49 Year
  Sex: Male
  Weight: 69 kg

DRUGS (5)
  1. ADARTREL [Suspect]
     Indication: RESTLESS LEGS SYNDROME
     Dosage: 2MG PER DAY
     Route: 048
     Dates: start: 20061001, end: 20070510
  2. LANSOPRAZOLE [Concomitant]
     Indication: DYSPEPSIA
     Route: 048
     Dates: start: 20070508
  3. PIRITON [Concomitant]
     Route: 048
     Dates: start: 20060601
  4. QVAR 40 [Concomitant]
     Indication: ASTHMA
     Route: 055
     Dates: start: 20050701
  5. SALBUTAMOL [Concomitant]
     Indication: ASTHMA
     Route: 055
     Dates: start: 20010101

REACTIONS (2)
  - CONDITION AGGRAVATED [None]
  - PERIPHERAL VASCULAR DISORDER [None]
